FAERS Safety Report 7005739-X (Version None)
Quarter: 2010Q3

REPORT INFORMATION
  Report Type: 
  Country: None (occurrence: None)
  Receive Date: 20100921
  Receipt Date: 20100915
  Transmission Date: 20110219
  Serious: Yes (Other)
  Sender: FDA-Public Use
  Company Number: US-MERCK-1009USA03320

PATIENT
  Age: 87 Year
  Sex: Female

DRUGS (2)
  1. SINEMET [Suspect]
     Indication: PARKINSON'S DISEASE
     Route: 048
  2. LEXAPRO [Concomitant]
     Route: 065

REACTIONS (2)
  - DYSKINESIA [None]
  - TIC [None]
